FAERS Safety Report 12092735 (Version 1)
Quarter: 2016Q1

REPORT INFORMATION
  Report Type: Spontaneous
  Country: RO (occurrence: RO)
  Receive Date: 20160219
  Receipt Date: 20160219
  Transmission Date: 20160526
  Serious: Yes (Other)
  Sender: FDA-Public Use
  Company Number: RO-SUN PHARMACEUTICAL INDUSTRIES LTD-2016RR-111841

PATIENT

DRUGS (1)
  1. FUROSEMIDE. [Suspect]
     Active Substance: FUROSEMIDE
     Indication: HYPERTENSION
     Dosage: 240 MG, DAILY (REDUCED TO 20 MG/DAY)
     Route: 065

REACTIONS (3)
  - Drug abuse [Recovered/Resolved]
  - Intentional product use issue [Recovered/Resolved]
  - Hyperparathyroidism [Recovered/Resolved]
